FAERS Safety Report 8573122-1 (Version None)
Quarter: 2012Q2

REPORT INFORMATION
  Report Type: 
  Country: None (occurrence: None)
  Receive Date: 20120423
  Receipt Date: 20090506
  Transmission Date: 20120825
  Serious: Yes (Hospitalization)
  Sender: FDA-Public Use
  Company Number: PHEH2009US04488

PATIENT
  Sex: Female

DRUGS (1)
  1. EXJADE [Suspect]
     Dosage: 20 MG, QD, ORAL
     Route: 048
     Dates: start: 20090301, end: 20090401

REACTIONS (1)
  - DIARRHOEA [None]
